FAERS Safety Report 12209101 (Version 1)
Quarter: 2016Q1

REPORT INFORMATION
  Report Type: Spontaneous
  Country: US (occurrence: US)
  Receive Date: 20160324
  Receipt Date: 20160324
  Transmission Date: 20160526
  Serious: Yes (Hospitalization, Other)
  Sender: FDA-Public Use
  Company Number: US-MDT-ADR-2016-00356

PATIENT
  Age: 51 Year
  Sex: Female

DRUGS (44)
  1. BUPIVACAINE [Suspect]
     Active Substance: BUPIVACAINE
     Dosage: 3.0 MG/DAY
     Route: 037
     Dates: start: 20151223, end: 20160216
  2. PERCOCET [Suspect]
     Active Substance: ACETAMINOPHEN\OXYCODONE HYDROCHLORIDE
     Dosage: 5-325 MG
     Route: 048
     Dates: end: 20160216
  3. BUPIVACAINE [Suspect]
     Active Substance: BUPIVACAINE
     Dosage: 3.0152 MG/DAY
     Route: 037
     Dates: start: 20150828
  4. BUPIVACAINE [Suspect]
     Active Substance: BUPIVACAINE
     Dosage: 3.2 MG/DAY
     Route: 037
     Dates: start: 20150828, end: 20150923
  5. LEVETIRACETAM. [Suspect]
     Active Substance: LEVETIRACETAM
  6. UNSPECIFIED MEDICATION [Suspect]
     Active Substance: UNSPECIFIED INGREDIENT
     Route: 042
  7. SUFENTA [Suspect]
     Active Substance: SUFENTANIL CITRATE
     Dosage: 190 MCG/DAY
     Route: 037
     Dates: start: 20140930
  8. BACLOFEN. [Suspect]
     Active Substance: BACLOFEN
     Dosage: 200.20 MCG/DAY
     Route: 037
     Dates: start: 20150806, end: 20150826
  9. COMPOUNDED BACLOFEN [Suspect]
     Active Substance: BACLOFEN
     Dosage: 132 MCG/DAY
     Route: 037
     Dates: start: 20150507
  10. NUVIGIL [Suspect]
     Active Substance: ARMODAFINIL
     Dosage: 150 MG
     Route: 048
  11. PRAMIPEXOLE. [Suspect]
     Active Substance: PRAMIPEXOLE
     Dosage: 0.5 MG
     Route: 048
  12. SUFENTA [Suspect]
     Active Substance: SUFENTANIL CITRATE
     Dosage: 160.23 MCG/DAY
     Route: 037
     Dates: start: 20150826, end: 20150828
  13. SUFENTA [Suspect]
     Active Substance: SUFENTANIL CITRATE
     Dosage: 190 MCG/DAY
     Route: 037
     Dates: start: 20140930
  14. PREMARIN [Suspect]
     Active Substance: ESTROGENS, CONJUGATED
     Dosage: 1.25 MG
     Route: 048
  15. BUPIVACAINE [Suspect]
     Active Substance: BUPIVACAINE
     Dosage: 6.982 MG/DAY
     Route: 037
     Dates: start: 20150806, end: 20150826
  16. SUFENTANIL [Suspect]
     Active Substance: SUFENTANIL
     Dosage: 190 MCG/DAY
     Route: 037
     Dates: start: 20140930
  17. BACLOFEN. [Suspect]
     Active Substance: BACLOFEN
     Dosage: 10 MG
     Route: 048
  18. HYDROCHLOROTHIAZIDE. [Suspect]
     Active Substance: HYDROCHLOROTHIAZIDE
     Dosage: 25 MG
     Route: 048
  19. DIAZEPAM. [Suspect]
     Active Substance: DIAZEPAM
     Dosage: 5 MG
     Route: 048
     Dates: start: 20140309
  20. TEMAZEPAM. [Suspect]
     Active Substance: TEMAZEPAM
     Dosage: 30 MG
     Route: 048
  21. PRIALT [Suspect]
     Active Substance: ZICONOTIDE ACETATE
     Dosage: 0.52438 MCG/DAY
     Route: 037
     Dates: start: 20150828
  22. SUFENTA [Suspect]
     Active Substance: SUFENTANIL CITRATE
     Dosage: 189.88 MCG/DAY
     Route: 037
     Dates: start: 20150923, end: 20151104
  23. BUPIVACAINE [Suspect]
     Active Substance: BUPIVACAINE
     Dosage: 7 MG/DAY
     Route: 037
     Dates: start: 20140930, end: 20150826
  24. COMPOUNDED BACLOFEN [Suspect]
     Active Substance: BACLOFEN
     Dosage: 125 MCG/DAY
     Route: 037
     Dates: start: 20150507
  25. BUPIVACAINE [Suspect]
     Active Substance: BUPIVACAINE
     Dosage: 3 MG/DAY
     Route: 037
     Dates: start: 20151223, end: 20160216
  26. BACLOFEN. [Suspect]
     Active Substance: BACLOFEN
     Dosage: 125 MG/DAY
     Route: 037
     Dates: start: 20150828
  27. VALACYCLOVIR [Suspect]
     Active Substance: VALACYCLOVIR HYDROCHLORIDE
     Dosage: 1 G
     Route: 048
  28. USP COMPOUNDED BACLOFEN [Suspect]
     Active Substance: BACLOFEN
     Dosage: 132 MCG/DAY
     Route: 037
     Dates: start: 20150507
  29. BUPIVACAINE [Suspect]
     Active Substance: BUPIVACAINE
     Route: 037
  30. SUFENTA [Suspect]
     Active Substance: SUFENTANIL CITRATE
     Dosage: 160 MCG/DAY
     Route: 037
     Dates: start: 20140930
  31. COMPOUNDED BACLOFEN [Suspect]
     Active Substance: BACLOFEN
     Dosage: 132 MCG/DAY
     Route: 037
     Dates: start: 20150507
  32. SUFENTA [Suspect]
     Active Substance: SUFENTANIL CITRATE
     Dosage: 160 MCG/DAY
     Route: 037
     Dates: start: 20140930
  33. PRIALT [Suspect]
     Active Substance: ZICONOTIDE ACETATE
     Dosage: 1.0357 MCG/DAY
     Route: 037
     Dates: start: 20150917, end: 20150923
  34. ABILIFY [Suspect]
     Active Substance: ARIPIPRAZOLE
     Dosage: 5 MG
     Route: 048
  35. BACLOFEN. [Suspect]
     Active Substance: BACLOFEN
     Dosage: 131.88 MG/DAY
     Route: 037
     Dates: start: 20150923, end: 20151104
  36. SULFENTANYL [Suspect]
     Active Substance: SUFENTANIL
     Dosage: 180.26 MCG/DAY
     Route: 037
     Dates: start: 20150828
  37. LYRICA [Suspect]
     Active Substance: PREGABALIN
  38. BUPIVACAINE [Suspect]
     Active Substance: BUPIVACAINE
     Dosage: 10.4 MG/DAY
     Route: 037
     Dates: start: 20140930, end: 20160826
  39. SUFENTA [Suspect]
     Active Substance: SUFENTANIL CITRATE
     Dosage: 169.92 MCG/DAY
     Route: 037
     Dates: start: 20150806, end: 20150826
  40. BACLOFEN. [Suspect]
     Active Substance: BACLOFEN
     Indication: SPINAL PAIN
     Route: 037
  41. BACLOFEN. [Suspect]
     Active Substance: BACLOFEN
     Dosage: 125.27 MCG/DAY
     Route: 037
     Dates: start: 20150826, end: 20150828
  42. SERTRALINE [Suspect]
     Active Substance: SERTRALINE HYDROCHLORIDE
     Dosage: 25 MG
     Route: 048
  43. TIZANIDINE. [Suspect]
     Active Substance: TIZANIDINE
     Dosage: 2 MG
     Route: 048
  44. FENTANYL. [Suspect]
     Active Substance: FENTANYL
     Route: 037

REACTIONS (22)
  - Diarrhoea [Recovered/Resolved]
  - Drug withdrawal syndrome [Recovered/Resolved]
  - Hypertension [Unknown]
  - Formication [Recovered/Resolved]
  - Oedema peripheral [Unknown]
  - Nausea [Recovered/Resolved]
  - Pollakiuria [Unknown]
  - Urinary hesitation [Recovered/Resolved]
  - Urticaria [Recovered/Resolved]
  - Pain [Unknown]
  - Somnolence [Unknown]
  - No therapeutic response [Unknown]
  - Hypotension [Unknown]
  - Peripheral swelling [Unknown]
  - Piloerection [Recovered/Resolved]
  - Therapeutic response unexpected [Unknown]
  - Cystitis interstitial [Unknown]
  - Hyperaesthesia [Unknown]
  - Sensory disturbance [Unknown]
  - Swelling [Unknown]
  - Implant site pain [Unknown]
  - Urinary retention [Unknown]
